FAERS Safety Report 5763342-3 (Version None)
Quarter: 2008Q2

REPORT INFORMATION
  Report Type: 
  Country: None (occurrence: None)
  Receive Date: 20080602
  Receipt Date: 20080229
  Transmission Date: 20081010
  Serious: No
  Sender: FDA-Public Use
  Company Number: PHEH2008US02416

PATIENT
  Sex: Male

DRUGS (5)
  1. TEKTURNA [Suspect]
  2. TOPROL-XL [Suspect]
  3. ASPIRIN [Suspect]
  4. TRICOR [Suspect]
  5. PREVACID [Suspect]

REACTIONS (2)
  - ANXIETY [None]
  - TREMOR [None]
